FAERS Safety Report 17478305 (Version 1)
Quarter: 2020Q1

REPORT INFORMATION
  Report Type: Spontaneous
  Country: US (occurrence: US)
  Receive Date: 20200229
  Receipt Date: 20200229
  Transmission Date: 20200409
  Serious: No
  Sender: FDA-Public Use
  Company Number: US-JNJFOC-20200234576

PATIENT
  Sex: Female
  Weight: 66.74 kg

DRUGS (1)
  1. TYLENOL 8 HR ARTHRITIS PAIN [Suspect]
     Active Substance: ACETAMINOPHEN
     Indication: ARTHRITIS
     Dosage: 2 TABLETS PER USE USED IT FOR 3X
     Route: 048
     Dates: start: 202002

REACTIONS (1)
  - Therapeutic product effect incomplete [Unknown]
